FAERS Safety Report 23656739 (Version 2)
Quarter: 2024Q2

REPORT INFORMATION
  Report Type: Report from Study
  Country: US (occurrence: US)
  Receive Date: 20240321
  Receipt Date: 20240423
  Transmission Date: 20240716
  Serious: Yes (Other)
  Sender: FDA-Public Use
  Company Number: US-TAKEDA-2021TUS051369

PATIENT
  Age: 24 Year
  Sex: Male
  Weight: 109 kg

DRUGS (2)
  1. LANADELUMAB [Suspect]
     Active Substance: LANADELUMAB
     Indication: Immune system disorder
     Dosage: 300 MILLIGRAM, Q4WEEKS
     Route: 058
     Dates: start: 20200320
  2. LANADELUMAB [Suspect]
     Active Substance: LANADELUMAB
     Dosage: 300 MILLIGRAM, Q4WEEKS
     Route: 058

REACTIONS (7)
  - Sleeve gastrectomy [Unknown]
  - Somnolence [Unknown]
  - Musculoskeletal injury [Unknown]
  - Constipation [Unknown]
  - Urticaria [Unknown]
  - Hereditary angioedema [Recovered/Resolved]
  - Product dose omission issue [Unknown]

NARRATIVE: CASE EVENT DATE: 20240306
